FAERS Safety Report 7873273-0 (Version None)
Quarter: 2011Q4

REPORT INFORMATION
  Report Type: 
  Country: None (occurrence: None)
  Receive Date: 20111027
  Receipt Date: 20111014
  Transmission Date: 20120403
  Serious: Yes (Hospitalization)
  Sender: FDA-Public Use
  Company Number: TCI2011A03585

PATIENT
  Age: 59 Year
  Sex: Male

DRUGS (4)
  1. GLUFAST (MITIGLINIDE CALCIUM) [Concomitant]
  2. AMLODIPINE BESYLATE [Concomitant]
  3. ACTOS [Suspect]
     Indication: DIABETES MELLITUS
     Dosage: 15 MG (15 MG, 1 IN 1 D)
     Route: 048
     Dates: start: 20081115
  4. LOSARTAN POTASSIUM [Concomitant]

REACTIONS (2)
  - PROSTATITIS [None]
  - BLADDER CANCER [None]
